FAERS Safety Report 14238325 (Version 1)
Quarter: 2017Q4

REPORT INFORMATION
  Report Type: Spontaneous
  Country: US (occurrence: US)
  Receive Date: 20171130
  Receipt Date: 20171130
  Transmission Date: 20180321
  Serious: No
  Sender: FDA-Public Use
  Company Number: US-PFIZER INC-2017510450

PATIENT
  Sex: Female

DRUGS (1)
  1. ATROPINE SULFATE/DIPHENOXYLATE HYDROCHLORIDE [Suspect]
     Active Substance: ATROPINE SULFATE\DIPHENOXYLATE HYDROCHLORIDE
     Dosage: UNK, DAILY(EVERYDAY)(FIRST WEEK)
     Dates: start: 20171029

REACTIONS (4)
  - Anxiety [Unknown]
  - Visual impairment [Unknown]
  - Dizziness [Unknown]
  - Product use issue [None]

NARRATIVE: CASE EVENT DATE: 2017
